FAERS Safety Report 7367262-2 (Version None)
Quarter: 2011Q1

REPORT INFORMATION
  Report Type: 
  Country: None (occurrence: None)
  Receive Date: 20110322
  Receipt Date: 20110311
  Transmission Date: 20110831
  Serious: Yes (Other)
  Sender: FDA-Public Use
  Company Number: US-PFIZER INC-2006031811

PATIENT
  Sex: Female

DRUGS (5)
  1. NEURONTIN [Suspect]
     Dosage: 400 MG, 3X/DAY
     Dates: start: 20031105
  2. CELEXA [Suspect]
     Dosage: 40 MG, UNK
     Dates: start: 20021217
  3. RISPERDAL [Suspect]
     Dosage: 2 MG, UNK
     Dates: start: 20030313
  4. NEURONTIN [Suspect]
     Dosage: 300 MG, 3X/DAY
     Route: 065
     Dates: start: 20020829
  5. CELEXA [Suspect]
     Dosage: 40MG AND 80MG
     Dates: start: 20030313

REACTIONS (4)
  - SUICIDAL IDEATION [None]
  - DEPRESSION [None]
  - BIPOLAR DISORDER [None]
  - PHYSICAL ASSAULT [None]
